FAERS Safety Report 7955709-X (Version None)
Quarter: 2011Q4

REPORT INFORMATION
  Report Type: 
  Country: None (occurrence: None)
  Receive Date: 20111204
  Receipt Date: 20100630
  Transmission Date: 20120403
  Serious: Yes (Hospitalization, Other)
  Sender: FDA-Public Use
  Company Number: PHHY2010TW63685

PATIENT
  Sex: Female

DRUGS (2)
  1. GLEEVEC [Suspect]
     Dosage: 400 MG, UNK
     Route: 048
     Dates: start: 20101027, end: 20101117
  2. GLEEVEC [Suspect]
     Indication: GASTROINTESTINAL STROMAL TUMOUR
     Dosage: 400 MG, UNK
     Route: 048
     Dates: start: 20091101

REACTIONS (12)
  - ABDOMINAL NEOPLASM [None]
  - FEELING HOT [None]
  - OEDEMA [None]
  - ANAL HAEMORRHAGE [None]
  - OEDEMA PERIPHERAL [None]
  - OROPHARYNGEAL PAIN [None]
  - SWELLING FACE [None]
  - GASTROINTESTINAL STROMAL TUMOUR [None]
  - COUGH [None]
  - WEIGHT INCREASED [None]
  - EYE SWELLING [None]
  - SWELLING [None]
